FAERS Safety Report 11861636 (Version 1)
Quarter: 2015Q4

REPORT INFORMATION
  Report Type: Spontaneous
  Country: US (occurrence: US)
  Receive Date: 20151222
  Receipt Date: 20151222
  Transmission Date: 20160305
  Serious: Yes (Other)
  Sender: FDA-Public Use
  Company Number: US-ASTRAZENECA-2015SF26702

PATIENT
  Age: 44 Year
  Sex: Female

DRUGS (13)
  1. CRESTOR [Suspect]
     Active Substance: ROSUVASTATIN CALCIUM
     Indication: BLOOD CHOLESTEROL INCREASED
     Route: 048
  2. AYGESTIN [Suspect]
     Active Substance: NORETHINDRONE ACETATE
     Indication: ENDOMETRIOSIS
     Route: 048
     Dates: start: 2010
  3. PROCARDIA [Concomitant]
     Active Substance: NIFEDIPINE
     Route: 048
  4. LUPRON DEPOT [Suspect]
     Active Substance: LEUPROLIDE ACETATE
     Indication: ENDOMETRIOSIS
     Dosage: 11.25MG/3 MONTH
     Route: 065
     Dates: end: 2008
  5. TRAMADOL. [Concomitant]
     Active Substance: TRAMADOL
  6. AMITRIPTYLINE [Concomitant]
     Active Substance: AMITRIPTYLINE
     Dosage: 1 DOSAGE FORMS (1 DOSAGE FORMS,1 IN 1 D)
     Route: 048
  7. VITAMIN B-COMPLEX [Concomitant]
     Active Substance: DEXPANTHENOL\NIACINAMIDE\PYRIDOXINE HYDROCHLORIDE\RIBOFLAVIN 5^-PHOSPHATE SODIUM\THIAMINE HYDROCHLORIDE
     Dosage: 1 DOSAGE FORMS (1 DOSAGE FORMS,1 IN 1 D)
     Route: 048
  8. OXYBUTYNIN [Concomitant]
     Active Substance: OXYBUTYNIN
     Dosage: 1 DOSAGE FORMS (1 DOSAGE FORMS,1 IN 1 D)
     Route: 048
  9. AYGESTIN [Suspect]
     Active Substance: NORETHINDRONE ACETATE
     Indication: ENDOMETRIOSIS
     Route: 048
     Dates: end: 2008
  10. SYMBICORT [Suspect]
     Active Substance: BUDESONIDE\FORMOTEROL FUMARATE DIHYDRATE
     Dosage: (1 DOSAGE FORMS,1 IN 1 D)
     Route: 055
  11. LUPRON DEPOT [Suspect]
     Active Substance: LEUPROLIDE ACETATE
     Indication: ENDOMETRIOSIS
     Dosage: 11.25MG/3 MONTH
     Route: 065
     Dates: start: 2010
  12. MOTRIN [Concomitant]
     Active Substance: IBUPROFEN
     Dosage: AS REQUIRED
  13. PROVENTIL [Concomitant]
     Active Substance: ALBUTEROL
     Dosage: (1 DOSAGE FORMS,AS REQUIRED)
     Route: 055

REACTIONS (10)
  - Infected cyst [Unknown]
  - Blood cholesterol increased [Unknown]
  - Pelvic pain [Unknown]
  - Vitamin D deficiency [Unknown]
  - Vomiting [Unknown]
  - Dizziness [Unknown]
  - Cyst [Recovered/Resolved]
  - Nausea [Unknown]
  - Soft tissue necrosis [Unknown]
  - Glucose tolerance impaired [Unknown]

NARRATIVE: CASE EVENT DATE: 2013
